FAERS Safety Report 5398783-X (Version None)
Quarter: 2007Q3

REPORT INFORMATION
  Report Type: 
  Country: None (occurrence: None)
  Receive Date: 20070724
  Receipt Date: 20070711
  Transmission Date: 20080115
  Serious: Yes (Life-Threatening, Other)
  Sender: FDA-Public Use
  Company Number: 2006AL002568

PATIENT
  Age: 95 Year
  Sex: Female

DRUGS (7)
  1. CITALOPRAM HYDROBROMIDE [Suspect]
     Dosage: 20 MG; QD; PO
     Route: 048
     Dates: end: 20060728
  2. FENTANYL [Concomitant]
  3. LEVOTHYROXINE SODIUM [Concomitant]
  4. OMEPRAZOLE [Concomitant]
  5. TEMAZEPAM [Concomitant]
  6. FENTANYL [Concomitant]
  7. LEVOTHYROXINE SODIUM [Concomitant]

REACTIONS (1)
  - BLOOD SODIUM DECREASED [None]
